FAERS Safety Report 4756230-2 (Version None)
Quarter: 2005Q3

REPORT INFORMATION
  Report Type: 
  Country: None (occurrence: None)
  Receive Date: 20050830
  Receipt Date: 20050510
  Transmission Date: 20060218
  Serious: No
  Sender: FDA-Public Use
  Company Number: US-GLAXOSMITHKLINE-A0557974A

PATIENT
  Sex: Female

DRUGS (2)
  1. WELLBUTRIN XL [Suspect]
     Indication: ANXIETY
     Dosage: 150MG PER DAY
     Route: 048
     Dates: start: 20050429
  2. NO CONCURRENT MEDICATION [Concomitant]

REACTIONS (3)
  - DRY MOUTH [None]
  - FEELING ABNORMAL [None]
  - MENTAL IMPAIRMENT [None]
